FAERS Safety Report 17983463 (Version 3)
Quarter: 2020Q3

REPORT INFORMATION
  Report Type: Report from Study
  Country: IE (occurrence: IE)
  Receive Date: 20200706
  Receipt Date: 20200928
  Transmission Date: 20201103
  Serious: Yes (Other)
  Sender: FDA-Public Use
  Company Number: IE-JNJFOC-20200516980

PATIENT
  Age: 44 Year
  Sex: Female

DRUGS (5)
  1. DESMOTABS [Concomitant]
     Active Substance: DESMOPRESSIN
     Route: 065
  2. STELARA [Suspect]
     Active Substance: USTEKINUMAB
     Route: 058
     Dates: start: 20200623
  3. STELARA [Suspect]
     Active Substance: USTEKINUMAB
     Dosage: ADMINISTERED 12?MAY?2020
     Route: 058
     Dates: start: 20190512
  4. STELARA [Suspect]
     Active Substance: USTEKINUMAB
     Dosage: ADMINISTERED 04?AUG?2020
     Route: 058
     Dates: start: 20190621
  5. STELARA [Suspect]
     Active Substance: USTEKINUMAB
     Indication: CROHN^S DISEASE
     Route: 058
     Dates: start: 20190621

REACTIONS (2)
  - Intestinal polyp [Not Recovered/Not Resolved]
  - Crohn^s disease [Not Recovered/Not Resolved]

NARRATIVE: CASE EVENT DATE: 2020
